FAERS Safety Report 9455152 (Version 1)
Quarter: 2013Q3

REPORT INFORMATION
  Report Type: Spontaneous
  Country: US (occurrence: US)
  Receive Date: 20130813
  Receipt Date: 20130813
  Transmission Date: 20140515
  Serious: Yes (Hospitalization)
  Sender: FDA-Public Use
  Company Number: US-SUN PHARMACEUTICAL INDUSTRIES LTD-2013SUN04189

PATIENT
  Sex: Female

DRUGS (2)
  1. ERGOCALCIFEROL [Suspect]
     Indication: SUPPLEMENTATION THERAPY
     Dosage: 50000 IU, WEEKLY
     Route: 065
     Dates: start: 201307
  2. INHALERS [Concomitant]

REACTIONS (4)
  - Dyspnoea [Unknown]
  - Dizziness [Unknown]
  - Skin reaction [Unknown]
  - Skin discolouration [Unknown]
